FAERS Safety Report 14406217 (Version 1)
Quarter: 2018Q1

REPORT INFORMATION
  Report Type: Spontaneous
  Country: ES (occurrence: ES)
  Receive Date: 20180118
  Receipt Date: 20180118
  Transmission Date: 20180509
  Serious: Yes (Other)
  Sender: FDA-Public Use
  Company Number: ES-OTSUKA-2018_000446

PATIENT
  Age: 30 Year
  Sex: Male

DRUGS (3)
  1. PAROXETINA 20 [Concomitant]
     Indication: PRODUCT USED FOR UNKNOWN INDICATION
     Dosage: UNK, QD (1-0-0)
     Route: 048
     Dates: start: 20170228
  2. ARIPIPRAZOLE. [Suspect]
     Active Substance: ARIPIPRAZOLE
     Indication: PRODUCT USED FOR UNKNOWN INDICATION
     Dosage: 20 MG, QD (1-0-0)
     Route: 048
     Dates: start: 20170228, end: 20170403
  3. TRANXILIUM 10 [Concomitant]
     Indication: PRODUCT USED FOR UNKNOWN INDICATION
     Dosage: UNK, QD (1-0-0)
     Route: 048
     Dates: start: 20170228

REACTIONS (1)
  - Hepatitis alcoholic [Recovered/Resolved]

NARRATIVE: CASE EVENT DATE: 20170403
